FAERS Safety Report 9262746 (Version 1)
Quarter: 2013Q2

REPORT INFORMATION
  Report Type: Report from Study
  Country: US (occurrence: US)
  Receive Date: 20130430
  Receipt Date: 20130430
  Transmission Date: 20140414
  Serious: Yes (Other)
  Sender: FDA-Public Use
  Company Number: PHEH2013US005115

PATIENT
  Age: 34 Year
  Sex: Female
  Weight: 70.3 kg

DRUGS (40)
  1. GILENYA [Suspect]
     Indication: MULTIPLE SCLEROSIS
     Dosage: 0.5 MG, QD
     Route: 048
     Dates: start: 20110908
  2. GABAPENTIN [Suspect]
     Dates: start: 201204, end: 201206
  3. NEXUM [Concomitant]
     Dosage: 40 MG, QD
     Route: 048
  4. TOPIRAMATE [Concomitant]
     Indication: HEADACHE
     Dosage: 100 MG, BID
     Route: 048
     Dates: start: 20120703
  5. DITROPAN XL [Concomitant]
     Dosage: 10 MG, QD
     Route: 048
  6. BACLOFEN [Concomitant]
     Indication: MUSCLE SPASTICITY
     Dosage: 10 MG, TID
     Route: 048
     Dates: start: 20100421
  7. ROPINIROLE [Concomitant]
     Indication: RESTLESS LEGS SYNDROME
     Dosage: 0.5 MG, BID
     Route: 048
     Dates: start: 20110908
  8. CITALOPRAM [Concomitant]
     Indication: DEPRESSION
     Dosage: 40 MG, QD
     Route: 048
     Dates: start: 20100421
  9. OSCAL D [Concomitant]
     Indication: OSTEOPOROSIS
     Dosage: 1 DF, QD
     Route: 048
     Dates: start: 20100421
  10. TYLENOL WITH CODEIN #3 [Concomitant]
     Indication: MIGRAINE
     Dosage: 300 MG, Q4H
     Route: 048
     Dates: start: 20100421
  11. TYLENOL WITH CODEIN #3 [Concomitant]
     Dosage: 30 MG, Q4H
     Route: 048
     Dates: start: 20100421
  12. FIORICET [Concomitant]
     Indication: HEADACHE
     Dosage: 50 MG, Q6H
     Dates: start: 20100421
  13. FIORICET [Concomitant]
     Dosage: 325 MG, Q6H
     Dates: start: 20100421
  14. FIORICET [Concomitant]
     Dosage: 40 MG, Q6H
     Dates: start: 20100421
  15. NECON [Concomitant]
     Dosage: 1 DF, QD
  16. XYZAL [Concomitant]
     Indication: RHINITIS ALLERGIC
     Dosage: 0.5 MG, QD
     Route: 048
  17. VITAMIN E [Concomitant]
     Dosage: 400 U, QD
     Route: 048
  18. MULTIPLE VITAMINS [Concomitant]
     Dosage: 1 DF, QD
     Route: 048
  19. FISH OIL [Concomitant]
     Dosage: 1000 MG, BID
  20. NITROFURANTOIN [Concomitant]
     Dosage: 50 MG, QD
  21. AMPYRA [Concomitant]
     Indication: GAIT DISTURBANCE
     Dosage: 10 MG, BID
     Route: 048
     Dates: start: 20130201
  22. COPAXONE [Concomitant]
     Dosage: 20 MG, UNK
  23. SINEMET [Concomitant]
     Dosage: 25-100 MG, UNK
     Route: 048
  24. MIRAPEX [Concomitant]
     Indication: RESTLESS LEGS SYNDROME
     Dosage: 0.5 MG, TID
     Route: 048
  25. MIRAPEX [Concomitant]
     Dosage: 0.25 MG, TID
     Route: 048
  26. FIBERCON [Concomitant]
     Dosage: 625 MG, PRN
     Route: 048
  27. CELEXA [Concomitant]
     Dosage: 20 MG, QD
     Route: 048
  28. DITROPAN [Concomitant]
     Indication: BLADDER DISORDER
     Dosage: 5 MG, QD
     Route: 048
  29. RITALIN [Concomitant]
     Dosage: 5 MG, TID
     Route: 048
  30. DECADRON [Concomitant]
     Dosage: 4 MG, UNK
     Route: 048
  31. RESTORIL [Concomitant]
     Indication: INSOMNIA
     Dosage: 30 MG, QHS
  32. OSCAL [Concomitant]
     Dosage: 500-200 MG, QD
     Route: 048
  33. PROVIGIL [Concomitant]
     Dosage: 100 MG, QD
     Route: 048
  34. TEMAZEPAM [Concomitant]
     Dosage: 1 DF, PRN
     Route: 048
  35. CATAFLAM [Concomitant]
     Dosage: 2 DF, TID
     Route: 048
  36. OGESTREL-28 [Concomitant]
     Dosage: 1 DF, QD
     Route: 048
  37. REQUIP [Concomitant]
     Dosage: 0.25 MG, TID
     Route: 048
  38. PILOPTIC [Concomitant]
     Indication: GLAUCOMA
     Route: 048
  39. KARIVA [Concomitant]
     Dosage: 1 DF, UNK
     Route: 048
  40. FLEXERIL [Concomitant]
     Dosage: 10 MG, UNK
     Route: 048

REACTIONS (18)
  - Seasonal affective disorder [Unknown]
  - Weight increased [Not Recovered/Not Resolved]
  - Depression [Not Recovered/Not Resolved]
  - Throat tightness [Not Recovered/Not Resolved]
  - Dysphagia [Unknown]
  - Carbon dioxide decreased [Unknown]
  - Blood chloride increased [Unknown]
  - Emotional disorder [Unknown]
  - Keratolysis exfoliativa acquired [Unknown]
  - Skin fissures [Unknown]
  - Skin hyperpigmentation [Unknown]
  - Optic atrophy [Unknown]
  - Euphoric mood [Unknown]
  - Aphasia [Unknown]
  - Visual acuity reduced [Unknown]
  - Urinary tract infection [Unknown]
  - Paraesthesia [Unknown]
  - Back pain [Unknown]
